FAERS Safety Report 7671266-X (Version None)
Quarter: 2011Q3

REPORT INFORMATION
  Report Type: 
  Country: None (occurrence: None)
  Receive Date: 20110803
  Receipt Date: 20110725
  Transmission Date: 20111222
  Serious: Yes (Disabling)
  Sender: FDA-Public Use
  Company Number: 2011SP034571

PATIENT
  Age: 6 Year
  Sex: Male

DRUGS (14)
  1. GARAMYCIN [Suspect]
     Indication: EAR INFECTION
     Dosage: NAS
     Route: 045
  2. GARAMYCIN [Suspect]
     Indication: LARYNGITIS
     Dosage: NAS
     Route: 045
  3. GARAMYCIN [Suspect]
     Indication: VIRAL INFECTION
     Dosage: NAS
     Route: 045
  4. GARAMAAT (GENTAMICIN SULFATE/BETAMETHASONE SODIUM PHOSPHATE /00747101/ [Suspect]
     Indication: VIRAL INFECTION
     Dosage: NAS
     Route: 045
  5. GARAMAAT (GENTAMICIN SULFATE/BETAMETHASONE SODIUM PHOSPHATE /00747101/ [Suspect]
     Indication: EAR INFECTION
     Dosage: NAS
     Route: 045
  6. GARAMAAT (GENTAMICIN SULFATE/BETAMETHASONE SODIUM PHOSPHATE /00747101/ [Suspect]
     Indication: LARYNGITIS
     Dosage: NAS
     Route: 045
  7. CLARIPEN [Concomitant]
  8. TOBREX [Suspect]
     Indication: LARYNGITIS
     Dosage: NAS
     Route: 045
  9. TOBREX [Suspect]
     Indication: EAR INFECTION
     Dosage: NAS
     Route: 045
  10. TOBREX [Suspect]
     Indication: VIRAL INFECTION
     Dosage: NAS
     Route: 045
  11. KLARIFECT [Concomitant]
  12. TOBRADEX [Suspect]
     Indication: VIRAL INFECTION
     Dosage: NAS
     Route: 045
  13. TOBRADEX [Suspect]
     Indication: LARYNGITIS
     Dosage: NAS
     Route: 045
  14. TOBRADEX [Suspect]
     Indication: EAR INFECTION
     Dosage: NAS
     Route: 045

REACTIONS (2)
  - DEAFNESS [None]
  - INCORRECT ROUTE OF DRUG ADMINISTRATION [None]
